FAERS Safety Report 13366789 (Version 1)
Quarter: 2017Q1

REPORT INFORMATION
  Report Type: Spontaneous
  Country: US (occurrence: US)
  Receive Date: 20170323
  Receipt Date: 20170323
  Transmission Date: 20170429
  Serious: Yes (Other)
  Sender: FDA-Public Use
  Company Number: None

PATIENT
  Age: 70 Year
  Sex: Female
  Weight: 58.5 kg

DRUGS (7)
  1. HYDROCOD/ACETAMINOPHEN 7.5-3.252 [Suspect]
     Active Substance: ACETAMINOPHEN\HYDROCODONE BITARTRATE
     Indication: INJURY
     Dosage: ?          QUANTITY:1 TABLET(S);?
     Route: 048
     Dates: start: 20170323, end: 20170323
  2. CLONAZEPAM. [Concomitant]
     Active Substance: CLONAZEPAM
  3. GLUCOSAMINE CHONDROTIN [Concomitant]
     Active Substance: CHONDROITIN SULFATE (BOVINE)\GLUCOSAMINE SULFATE
  4. BUPRIOPION [Concomitant]
  5. PRESTONI [Concomitant]
  6. MULTI VITAMIN [Concomitant]
     Active Substance: VITAMINS
  7. ZETIA [Concomitant]
     Active Substance: EZETIMIBE

REACTIONS (2)
  - Pruritus generalised [None]
  - Limb injury [None]

NARRATIVE: CASE EVENT DATE: 20170323
